FAERS Safety Report 6981880-2 (Version None)
Quarter: 2010Q3

REPORT INFORMATION
  Report Type: 
  Country: None (occurrence: None)
  Receive Date: 20100914
  Receipt Date: 20091026
  Transmission Date: 20110219
  Serious: No
  Sender: FDA-Public Use
  Company Number: US-PFIZER INC-2009282964

PATIENT

DRUGS (4)
  1. LYRICA [Suspect]
     Indication: NEURALGIA
     Dosage: UNK
  2. NEURONTIN [Suspect]
     Indication: NEURALGIA
     Dosage: UNK
  3. MORPHINE HCL ELIXIR [Suspect]
     Indication: NEURALGIA
     Dosage: UNK
  4. CYMBALTA [Suspect]
     Indication: NEURALGIA
     Dosage: UNK

REACTIONS (1)
  - PAIN [None]
